FAERS Safety Report 8575674-4 (Version None)
Quarter: 2012Q3

REPORT INFORMATION
  Report Type: 
  Country: None (occurrence: None)
  Receive Date: 20120807
  Receipt Date: 20120802
  Transmission Date: 20120928
  Serious: Yes (Other)
  Sender: FDA-Public Use
  Company Number: PHHY2012BR067561

PATIENT
  Age: 68 Year
  Sex: Female

DRUGS (1)
  1. NATEGLINIDE [Suspect]
     Indication: DIABETES MELLITUS
     Dosage: 1 DF, TID

REACTIONS (1)
  - ASTHMA [None]
